FAERS Safety Report 17200057 (Version 1)
Quarter: 2019Q4

REPORT INFORMATION
  Report Type: Spontaneous
  Country: ES (occurrence: ES)
  Receive Date: 20191226
  Receipt Date: 20191226
  Transmission Date: 20200122
  Serious: No
  Sender: FDA-Public Use
  Company Number: ES-LUPIN PHARMACEUTICALS INC.-2019-08154

PATIENT
  Age: 52 Year
  Sex: Male

DRUGS (1)
  1. IMATINIB MESYLATE. [Suspect]
     Active Substance: IMATINIB MESYLATE
     Indication: CHRONIC MYELOID LEUKAEMIA
     Dosage: 400 UNK, QD
     Route: 065
     Dates: start: 2017

REACTIONS (3)
  - Eyelid oedema [Unknown]
  - Weight increased [Unknown]
  - Vomiting [Unknown]
